FAERS Safety Report 21370923 (Version 2)
Quarter: 2022Q4

REPORT INFORMATION
  Report Type: Report from Study
  Country: US (occurrence: US)
  Receive Date: 20220923
  Receipt Date: 20221022
  Transmission Date: 20230112
  Serious: Yes (Hospitalization)
  Sender: FDA-Public Use
  Company Number: US-ABBVIE-22K-163-4533384-00

PATIENT
  Age: 73 Year
  Sex: Male

DRUGS (2)
  1. IMBRUVICA [Suspect]
     Active Substance: IBRUTINIB
     Indication: Product used for unknown indication
     Route: 048
  2. IMBRUVICA [Suspect]
     Active Substance: IBRUTINIB
     Indication: Product used for unknown indication
     Route: 048

REACTIONS (7)
  - Pneumonia [Recovering/Resolving]
  - Fungal infection [Unknown]
  - Cough [Unknown]
  - White blood cell count abnormal [Unknown]
  - Pseudomonas infection [Unknown]
  - Chronic obstructive pulmonary disease [Unknown]
  - Lung disorder [Unknown]

NARRATIVE: CASE EVENT DATE: 20220601
